FAERS Safety Report 19973176 (Version 2)
Quarter: 2022Q1

REPORT INFORMATION
  Report Type: Report from Study
  Country: CA (occurrence: CA)
  Receive Date: 20211019
  Receipt Date: 20220117
  Transmission Date: 20220423
  Serious: Yes (Hospitalization)
  Sender: FDA-Public Use
  Company Number: CA-ABBVIE-21K-028-4065243-00

PATIENT
  Sex: Male

DRUGS (3)
  1. RINVOQ [Suspect]
     Active Substance: UPADACITINIB
     Indication: Psoriatic arthropathy
     Route: 048
     Dates: start: 20210716
  2. RINVOQ [Suspect]
     Active Substance: UPADACITINIB
     Route: 048
     Dates: start: 20220109
  3. PREDNISONE [Concomitant]
     Active Substance: PREDNISONE
     Indication: Product used for unknown indication

REACTIONS (23)
  - Atrial fibrillation [Unknown]
  - Lung disorder [Unknown]
  - Diabetes mellitus [Unknown]
  - Insomnia [Unknown]
  - Pain [Not Recovered/Not Resolved]
  - Poor peripheral circulation [Unknown]
  - Malaise [Not Recovered/Not Resolved]
  - Skin discolouration [Unknown]
  - Unevaluable event [Unknown]
  - Unevaluable event [Unknown]
  - Impaired healing [Unknown]
  - Localised infection [Unknown]
  - Gait disturbance [Not Recovered/Not Resolved]
  - Rheumatoid arthritis [Not Recovered/Not Resolved]
  - Joint swelling [Unknown]
  - Feeling abnormal [Unknown]
  - Pain [Unknown]
  - Wound [Unknown]
  - Impaired healing [Unknown]
  - Blood glucose fluctuation [Unknown]
  - Swelling [Not Recovered/Not Resolved]
  - Inflammation [Not Recovered/Not Resolved]
  - Discharge [Unknown]

NARRATIVE: CASE EVENT DATE: 20210101
